FAERS Safety Report 4634258-0 (Version None)
Quarter: 2005Q2

REPORT INFORMATION
  Report Type: 
  Country: None (occurrence: None)
  Receive Date: 20050325
  Receipt Date: 20050202
  Transmission Date: 20051028
  Serious: No
  Sender: FDA-Public Use
  Company Number: USA041183781

PATIENT
  Age: 80 Year
  Sex: Female
  Weight: 59 kg

DRUGS (3)
  1. FORTEO [Suspect]
     Indication: BONE DISORDER
     Dosage: 20 UG/1 DAY
     Dates: start: 20040601
  2. TYLENOL [Concomitant]
  3. CALCIUM GLUCONATE [Concomitant]

REACTIONS (2)
  - HAEMATOCHEZIA [None]
  - STOMACH DISCOMFORT [None]
